FAERS Safety Report 13547880 (Version 1)
Quarter: 2017Q2

REPORT INFORMATION
  Report Type: Spontaneous
  Country: US (occurrence: US)
  Receive Date: 20170516
  Receipt Date: 20170516
  Transmission Date: 20170830
  Serious: Yes (Death, Other)
  Sender: FDA-Public Use
  Company Number: US-ALEMBIC PHARMACUETICALS LIMITED-2017SCAL000401

PATIENT

DRUGS (1)
  1. PREGABALIN. [Suspect]
     Active Substance: PREGABALIN
     Indication: PRODUCT USED FOR UNKNOWN INDICATION
     Dosage: UNK
     Route: 065

REACTIONS (11)
  - Death [Fatal]
  - Irritability [Unknown]
  - Drug use disorder [Unknown]
  - Intentional product misuse [Unknown]
  - Hypotension [Unknown]
  - Lethargy [Unknown]
  - Cardiac arrest [Unknown]
  - Agitation [Unknown]
  - Somnolence [Unknown]
  - Respiratory depression [Unknown]
  - Tachycardia [Unknown]
